FAERS Safety Report 14967236 (Version 1)
Quarter: 2018Q2

REPORT INFORMATION
  Report Type: Report from Study
  Country: US (occurrence: US)
  Receive Date: 20180604
  Receipt Date: 20180604
  Transmission Date: 20180711
  Serious: Yes (Death, Life-Threatening, Other)
  Sender: FDA-Public Use
  Company Number: US-CHEPLA-C20170530

PATIENT

DRUGS (20)
  1. IDARUBICIN [Suspect]
     Active Substance: IDARUBICIN
     Indication: ACUTE PROMYELOCYTIC LEUKAEMIA
     Dosage: CONSOLIDATION 4: 10 MG/M^2/D ON DAY 4
  2. MITOXANTRONE [Suspect]
     Active Substance: MITOXANTRONE HYDROCHLORIDE
     Indication: ACUTE PROMYELOCYTIC LEUKAEMIA
     Dosage: CUMULATIVE ANTHRACYCLINE DOSING: 20 MG/M^2
  3. MERCAPTOPURINE. [Suspect]
     Active Substance: MERCAPTOPURINE
     Indication: ACUTE PROMYELOCYTIC LEUKAEMIA
     Dosage: MAINTENANCE: 50 MG/M^2 ORAL DAILY
     Route: 048
  4. DAUNORUBICIN EQUIVALENTS [Suspect]
     Active Substance: DAUNORUBICIN
     Indication: ACUTE PROMYELOCYTIC LEUKAEMIA
     Dosage: CUMULATIVE DAUNORUBICIN EQUIVALENTS: 385 MG/M^2 FOR HIGH RISK PATIENTS
  5. ATRA (ALL-TRANS RETINOIC ACID) [Suspect]
     Active Substance: TRETINOIN
     Indication: ACUTE PROMYELOCYTIC LEUKAEMIA
     Dosage: 25 MG/M^2/DAY DIVIDED TWICE DAILY?
  6. IDARUBICIN [Suspect]
     Active Substance: IDARUBICIN
     Indication: ACUTE PROMYELOCYTIC LEUKAEMIA
     Dosage: CONSOLIDATION 4: 0.33 MG/KG (IF { 0.6 M^2) ON DAY 4
  7. CYTARABINE. [Suspect]
     Active Substance: CYTARABINE
     Indication: ACUTE PROMYELOCYTIC LEUKAEMIA
     Dosage: CONSOLIDATION 2 + 4, MAINTENANCE: 30 MG IF AGE IS GREATER THAN OR EQUAL TO 3 YEARS
     Route: 037
  8. MITOXANTRONE [Suspect]
     Active Substance: MITOXANTRONE HYDROCHLORIDE
     Indication: ACUTE PROMYELOCYTIC LEUKAEMIA
     Dosage: CONSOLIDATION 2: 0.33 MG/KG (IF { 0.6 M^2) ON DAYS 3 AND 4
  9. METHOTREXATE. [Suspect]
     Active Substance: METHOTREXATE
     Indication: ACUTE PROMYELOCYTIC LEUKAEMIA
     Dosage: MAINTENANCE: 25 MG/M^2 ORAL WEEKLY
     Route: 048
  10. ATO (ARSENIC TRIOXIDE) [Suspect]
     Active Substance: ARSENIC TRIOXIDE
     Indication: ACUTE PROMYELOCYTIC LEUKAEMIA
     Dosage: CONSOLIDATION 1: 0.15 MG/KG/D ON DAYS 1-5, 8-12, 15-19, 22-26, AND 29-33
  11. IDARUBICIN [Suspect]
     Active Substance: IDARUBICIN
     Indication: ACUTE PROMYELOCYTIC LEUKAEMIA
     Dosage: CUMULATIVE ANTHRACYCLINE DOSING: 61 MG/M^2 FOR HIGH RISK APL
  12. IDARUBICIN [Suspect]
     Active Substance: IDARUBICIN
     Indication: ACUTE PROMYELOCYTIC LEUKAEMIA
     Dosage: CONSOLIDATION 3: 5 MG/M^2/D ON DAYS 1, 3, AND 5
  13. CYTARABINE. [Suspect]
     Active Substance: CYTARABINE
     Indication: ACUTE PROMYELOCYTIC LEUKAEMIA
     Dosage: CONSOLIDATION 2 + 4, MAINTENANCE: 25 MG IF AGE { 3 YEARS
     Route: 037
  14. DAUNORUBICIN EQUIVALENTS [Suspect]
     Active Substance: DAUNORUBICIN
     Indication: ACUTE PROMYELOCYTIC LEUKAEMIA
     Dosage: CUMULATIVE DAUNORUBICIN EQUIVALENTS: 335 MG/M^2 FOR STANDARD RISK PATIENTS
  15. IDARUBICIN [Suspect]
     Active Substance: IDARUBICIN
     Indication: ACUTE PROMYELOCYTIC LEUKAEMIA
     Dosage: INDUCTION: 12 MG/M^2/D ON DAYS 3, 5, AND 7 (STANDARD RISK APL); DAYS 1, 3, 5 (HIGH RISK APL)
  16. IDARUBICIN [Suspect]
     Active Substance: IDARUBICIN
     Indication: ACUTE PROMYELOCYTIC LEUKAEMIA
     Dosage: CONSOLIDATION 3: 0.17 MG/M^2/D ON DAYS 1, 3, AND 5 (IF { 0.6 M^2)
  17. IDARUBICIN [Suspect]
     Active Substance: IDARUBICIN
     Indication: ACUTE PROMYELOCYTIC LEUKAEMIA
     Dosage: CUMULATIVE ANTHRACYCLINE DOSING: 51 MG/M^2 FOR STANDARD RISK APL
  18. CYTARABINE. [Suspect]
     Active Substance: CYTARABINE
     Indication: ACUTE PROMYELOCYTIC LEUKAEMIA
     Dosage: CONSOLIDATION 2 + 4: 33.3 MG/KG (IF { 0.6 M^2) EVERY 12 HOURS ON DAYS 1-3
  19. CYTARABINE. [Suspect]
     Active Substance: CYTARABINE
     Indication: ACUTE PROMYELOCYTIC LEUKAEMIA
     Dosage: CONSOLIDATION 2 + 4: 1,000 MG/M^2 EVERY 12 HOURS ON DAYS 1-3
  20. MITOXANTRONE [Suspect]
     Active Substance: MITOXANTRONE HYDROCHLORIDE
     Indication: ACUTE PROMYELOCYTIC LEUKAEMIA
     Dosage: CONSOLIDATION 2: 10 MG/M^2/D ON DAYS 3 AND 4

REACTIONS (29)
  - Idiopathic intracranial hypertension [Unknown]
  - Hypokalaemia [Unknown]
  - Acute monocytic leukaemia [Unknown]
  - Device related infection [None]
  - Lung infection [None]
  - Coagulopathy [None]
  - Infection [Fatal]
  - Alanine aminotransferase increased [Unknown]
  - Leukaemia recurrent [Unknown]
  - Left ventricular dysfunction [Unknown]
  - Pain [Unknown]
  - Skin cancer [Unknown]
  - Neoplasm malignant [None]
  - Accidental overdose [None]
  - Ventricular arrhythmia [Unknown]
  - Acute promyelocytic leukaemia differentiation syndrome [Fatal]
  - Aspartate aminotransferase increased [Unknown]
  - Rash maculo-papular [Unknown]
  - Hepatotoxicity [None]
  - Pyrexia [Unknown]
  - Febrile neutropenia [Unknown]
  - Stomatitis [Unknown]
  - Blood bilirubin increased [Unknown]
  - Serratia sepsis [None]
  - Multiple organ dysfunction syndrome [None]
  - Disseminated intravascular coagulation [Fatal]
  - Electrocardiogram QT prolonged [Unknown]
  - Hyperglycaemia [Unknown]
  - Acute promyelocytic leukaemia [None]
